FAERS Safety Report 24973538 (Version 6)
Quarter: 2025Q4

REPORT INFORMATION
  Report Type: Spontaneous
  Country: JP (occurrence: JP)
  Receive Date: 20250216
  Receipt Date: 20251119
  Transmission Date: 20260117
  Serious: Yes (Death, Life-Threatening, Hospitalization, Other)
  Sender: ABBVIE
  Company Number: JP-TAKEDA-2025TJP001684

PATIENT
  Age: 61 Year
  Sex: Male
  Weight: 68.5 kg

DRUGS (36)
  1. LEUPROLIDE ACETATE [Suspect]
     Active Substance: LEUPROLIDE ACETATE
     Indication: Bulbospinal muscular atrophy congenital
     Dosage: 11.25 MILLIGRAM, Q3MONTHS
     Route: 058
     Dates: start: 20200718, end: 20231122
  2. ZETIA [Concomitant]
     Active Substance: EZETIMIBE
     Indication: Product used for unknown indication
     Dosage: 10 MILLIGRAM
     Route: 065
  3. OLMESARTAN [Concomitant]
     Active Substance: OLMESARTAN
     Indication: Product used for unknown indication
     Dosage: 20 MILLIGRAM
     Route: 065
  4. KETOPROFEN [Concomitant]
     Active Substance: KETOPROFEN
     Indication: Back pain
     Dosage: 40 MILLIGRAM
     Route: 065
  5. BANAN [Concomitant]
     Active Substance: CEFPODOXIME PROXETIL
     Indication: Bronchitis
     Dosage: 100 MILLIGRAM, BID
     Route: 048
     Dates: start: 20210618, end: 20210622
  6. BANAN [Concomitant]
     Active Substance: CEFPODOXIME PROXETIL
     Indication: Bronchitis
     Dosage: 100 MILLIGRAM, BID
     Route: 048
     Dates: start: 20210618, end: 20210622
  7. Canalia [Concomitant]
     Indication: Product used for unknown indication
     Dosage: 1 DOSAGE FORM
     Route: 065
  8. METGLUCO [Concomitant]
     Active Substance: METFORMIN HYDROCHLORIDE
     Indication: Product used for unknown indication
     Dosage: 750 MILLIGRAM
     Route: 065
  9. CEFEPIME HYDROCHLORIDE [Concomitant]
     Active Substance: CEFEPIME HYDROCHLORIDE
     Indication: Pneumonia
     Dosage: 1 GRAM, BID?DOSE: INJECTION?ROA: INTRAVENOUS DRIP
     Dates: start: 20230729, end: 20230804
  10. CEFEPIME HYDROCHLORIDE [Concomitant]
     Active Substance: CEFEPIME HYDROCHLORIDE
     Indication: Pneumonia
     Dosage: 1 GRAM, BID?DOSE: INJECTION?ROA: INTRAVENOUS DRIP
     Dates: start: 20231004, end: 20231010
  11. CEFEPIME HYDROCHLORIDE [Concomitant]
     Active Substance: CEFEPIME HYDROCHLORIDE
     Indication: Pneumonia
     Dosage: 1 GRAM, BID?DOSE: INJECTION?ROA: INTRAVENOUS DRIP
     Dates: start: 20220601, end: 20220606
  12. CEFEPIME HYDROCHLORIDE [Concomitant]
     Active Substance: CEFEPIME HYDROCHLORIDE
     Indication: Pneumonia
     Dosage: 1 GRAM, BID?DOSE: INJECTION?ROA: INTRAVENOUS DRIP
     Dates: start: 20230828, end: 20230901
  13. CEFEPIME HYDROCHLORIDE [Concomitant]
     Active Substance: CEFEPIME HYDROCHLORIDE
     Indication: Pneumonia
     Dosage: 1 GRAM, BID?DOSE: INJECTION?ROA: INTRAVENOUS DRIP
     Dates: start: 20231004, end: 20231010
  14. CEFEPIME HYDROCHLORIDE [Concomitant]
     Active Substance: CEFEPIME HYDROCHLORIDE
     Indication: Pneumonia
     Dosage: 1 GRAM, BID?DOSE: INJECTION?ROA: INTRAVENOUS DRIP
     Dates: start: 20240106, end: 20240115
  15. CEFEPIME HYDROCHLORIDE [Concomitant]
     Active Substance: CEFEPIME HYDROCHLORIDE
     Indication: Pneumonia
     Dosage: 1 GRAM, BID?DOSE: INJECTION?ROA: INTRAVENOUS DRIP
     Dates: start: 20230828, end: 20230901
  16. CEFEPIME HYDROCHLORIDE [Concomitant]
     Active Substance: CEFEPIME HYDROCHLORIDE
     Indication: Pneumonia
     Dosage: 1 GRAM, BID?DOSE: INJECTION?ROA: INTRAVENOUS DRIP
     Dates: start: 20230922, end: 20230925
  17. CEFEPIME HYDROCHLORIDE [Concomitant]
     Active Substance: CEFEPIME HYDROCHLORIDE
     Indication: Pneumonia
     Dosage: 1 GRAM, BID?DOSE: INJECTION?ROA: INTRAVENOUS DRIP
     Dates: start: 20240106, end: 20240115
  18. CEFEPIME HYDROCHLORIDE [Concomitant]
     Active Substance: CEFEPIME HYDROCHLORIDE
     Indication: Pneumonia
     Dosage: 1 GRAM, BID?DOSE: INJECTION?ROA: INTRAVENOUS DRIP
     Dates: start: 20230807, end: 20230816
  19. CEFEPIME HYDROCHLORIDE [Concomitant]
     Active Substance: CEFEPIME HYDROCHLORIDE
     Indication: Pneumonia
     Dosage: 1 GRAM, BID?DOSE: INJECTION?ROA: INTRAVENOUS DRIP
     Dates: start: 20230807, end: 20230816
  20. CEFEPIME HYDROCHLORIDE [Concomitant]
     Active Substance: CEFEPIME HYDROCHLORIDE
     Indication: Pneumonia
     Dosage: 1 GRAM, BID?DOSE: INJECTION?ROA: INTRAVENOUS DRIP
     Dates: start: 20231205, end: 20231213
  21. CEFEPIME HYDROCHLORIDE [Concomitant]
     Active Substance: CEFEPIME HYDROCHLORIDE
     Indication: Pneumonia
     Dosage: 1 GRAM, BID?DOSE: INJECTION?ROA: INTRAVENOUS DRIP
     Dates: start: 20231115, end: 20231120
  22. CEFEPIME HYDROCHLORIDE [Concomitant]
     Active Substance: CEFEPIME HYDROCHLORIDE
     Indication: Pneumonia
     Dosage: 1 GRAM, BID?DOSE: INJECTION?ROA: INTRAVENOUS DRIP
     Dates: start: 20230729, end: 20230804
  23. CEFEPIME HYDROCHLORIDE [Concomitant]
     Active Substance: CEFEPIME HYDROCHLORIDE
     Indication: Pneumonia
     Dosage: 1 GRAM, BID?DOSE: INJECTION?ROA: INTRAVENOUS DRIP
     Dates: start: 20230922, end: 20230925
  24. CEFEPIME HYDROCHLORIDE [Concomitant]
     Active Substance: CEFEPIME HYDROCHLORIDE
     Indication: Pneumonia
     Dosage: 1 GRAM, BID?DOSE: INJECTION?ROA: INTRAVENOUS DRIP
     Dates: start: 20231115, end: 20231120
  25. CEFEPIME HYDROCHLORIDE [Concomitant]
     Active Substance: CEFEPIME HYDROCHLORIDE
     Indication: Pneumonia
     Dosage: 1 GRAM, BID?DOSE: INJECTION?ROA: INTRAVENOUS DRIP
     Dates: start: 20231205, end: 20231213
  26. CEFEPIME HYDROCHLORIDE [Concomitant]
     Active Substance: CEFEPIME HYDROCHLORIDE
     Indication: Pneumonia
     Dosage: 1 GRAM, BID?DOSE: INJECTION?ROA: INTRAVENOUS DRIP
     Dates: start: 20220601, end: 20220606
  27. AMBROXOL HYDROCHLORIDE [Concomitant]
     Active Substance: AMBROXOL HYDROCHLORIDE
     Indication: Bronchitis
     Dosage: 15 MILLIGRAM, TID
     Route: 048
     Dates: start: 20210618, end: 20210622
  28. AMBROXOL HYDROCHLORIDE [Concomitant]
     Active Substance: AMBROXOL HYDROCHLORIDE
     Indication: Bronchitis
     Dosage: TIME INTERVAL: 0.33333333 DAYS: 15 MILLIGRAM, TID
     Route: 048
     Dates: start: 20210618, end: 20210622
  29. VANCOMYCIN [Concomitant]
     Active Substance: VANCOMYCIN
     Indication: Pneumonia
     Dosage: 1 GRAM, BID?DOSE: INJECTION?ROA: INTRAVENOUS DRIP
     Dates: start: 20220415, end: 20220418
  30. VANCOMYCIN [Concomitant]
     Active Substance: VANCOMYCIN
     Indication: Pneumonia
     Dosage: 1 GRAM, BID?DOSE: INJECTION?ROA: INTRAVENOUS DRIP
     Dates: start: 20220415, end: 20220418
  31. ZOSYN [Concomitant]
     Active Substance: PIPERACILLIN SODIUM\TAZOBACTAM SODIUM
     Indication: Pneumonia
     Dosage: 4.5 GRAM, TID?DOSE:INJECTION?ROA: INTRAVENOUS DRIP
     Dates: start: 20220413
  32. ZOSYN [Concomitant]
     Active Substance: PIPERACILLIN SODIUM\TAZOBACTAM SODIUM
     Indication: Pneumonia
     Dosage: TIME INTERVAL: 0.33333333 DAYS: 4.5 GRAM, TID?INTRAVENOUS DRIP
     Dates: start: 20220413
  33. FUROSEMIDE [Concomitant]
     Active Substance: FUROSEMIDE
     Indication: Renal failure
     Dosage: 60 MILLIGRAM, QD?DOSE :INJECTION
     Route: 042
     Dates: start: 20220419
  34. SOLU-MEDROL [Concomitant]
     Active Substance: METHYLPREDNISOLONE SODIUM SUCCINATE
     Indication: Pneumonia
     Dosage: 80 MILLIGRAM, QD?ROA: INTRAVENOUS DRIP?DOSE:INJECTION
     Dates: start: 20220414
  35. VEKLURY [Concomitant]
     Active Substance: REMDESIVIR
     Indication: COVID-19
     Dosage: 200 MILLIGRAM, QD?ROA: INTRAVENOUS DRIP?DOSE:INJECTION
     Dates: start: 20230124, end: 20230124
  36. VEKLURY [Concomitant]
     Active Substance: REMDESIVIR
     Indication: COVID-19
     Dosage: 100 MILLIGRAM, QD?ROA: INTRAVENOUS DRIP?DOSE: INJECTION
     Dates: start: 20230125, end: 20230126

REACTIONS (7)
  - Plasma cell myeloma [Fatal]
  - Lipid metabolism disorder [Recovered/Resolved]
  - Diabetes mellitus [Recovering/Resolving]
  - Bronchitis [Recovered/Resolved]
  - Pneumonia [Recovered/Resolved]
  - Pneumonia [Recovered/Resolved]
  - Acute kidney injury [Recovering/Resolving]

NARRATIVE: CASE EVENT DATE: 20201228
